FAERS Safety Report 12533730 (Version 1)
Quarter: 2016Q3

REPORT INFORMATION
  Report Type: Spontaneous
  Country: US (occurrence: US)
  Receive Date: 20160706
  Receipt Date: 20160706
  Transmission Date: 20161109
  Serious: No
  Sender: FDA-Public Use
  Company Number: US-009507513-1606USA007874

PATIENT
  Sex: Female

DRUGS (2)
  1. NEXPLANON [Suspect]
     Active Substance: ETONOGESTREL
     Indication: CONTRACEPTION
     Dosage: 68 MG / ONE ROD PER 3 YEARS
     Route: 059
     Dates: start: 20150904
  2. KEFLEX [Suspect]
     Active Substance: CEPHALEXIN

REACTIONS (2)
  - Implant site rash [Not Recovered/Not Resolved]
  - Musculoskeletal pain [Not Recovered/Not Resolved]
